FAERS Safety Report 4577978-9 (Version None)
Quarter: 2005Q1

REPORT INFORMATION
  Report Type: 
  Country: None (occurrence: None)
  Receive Date: 20050209
  Receipt Date: 20050128
  Transmission Date: 20050727
  Serious: Yes (Other)
  Sender: FDA-Public Use
  Company Number: DE-2005-001344

PATIENT
  Age: 45 Year
  Sex: Female

DRUGS (1)
  1. MIRENA [Suspect]
     Dosage: 20 UG/DAY CONT INTRA-UTERINE
     Route: 015
     Dates: start: 20040701

REACTIONS (3)
  - CONDITION AGGRAVATED [None]
  - GLAUCOMA [None]
  - OPTIC NERVE DISORDER [None]
